FAERS Safety Report 25286066 (Version 1)
Quarter: 2025Q2

REPORT INFORMATION
  Report Type: Report from Study
  Country: ES (occurrence: ES)
  Receive Date: 20250509
  Receipt Date: 20250509
  Transmission Date: 20250717
  Serious: Yes (Other)
  Sender: TEVA
  Company Number: ES-TEVA-VS-3327529

PATIENT
  Age: 70 Year
  Sex: Female

DRUGS (13)
  1. TERIPARATIDE [Suspect]
     Active Substance: TERIPARATIDE
     Indication: Osteoporosis
     Route: 065
     Dates: start: 20250429
  2. ATORVASTATIN CALCIUM [Concomitant]
     Active Substance: ATORVASTATIN CALCIUM
     Indication: Hypercholesterolaemia
  3. Eutirox 88 [Concomitant]
     Indication: Hypothyroidism
  4. FOSTER [Concomitant]
     Active Substance: BECLOMETHASONE\FORMOTEROL
     Indication: Asthma
  5. SINGULAIR [Concomitant]
     Active Substance: MONTELUKAST SODIUM
     Indication: Asthma
  6. EBASTINE [Concomitant]
     Active Substance: EBASTINE
     Indication: Asthma
  7. INCRUSE ELLIPTA [Concomitant]
     Active Substance: UMECLIDINIUM BROMIDE
     Indication: Asthma
  8. Experimental vaccine [Concomitant]
     Indication: Asthma
  9. Capenon 20mg [Concomitant]
     Indication: Hypertension
  10. RIFAXIMIN [Concomitant]
     Active Substance: RIFAXIMIN
     Indication: Diverticulitis
  11. Vidacil [Concomitant]
     Indication: Bipolar disorder
  12. NEXIUM [Concomitant]
     Active Substance: ESOMEPRAZOLE MAGNESIUM
     Indication: Gastrooesophageal reflux disease
  13. Vitamin K2 and magnesium [Concomitant]
     Indication: Osteoporosis

REACTIONS (7)
  - Dizziness [Not Recovered/Not Resolved]
  - Fatigue [Not Recovered/Not Resolved]
  - Nausea [Not Recovered/Not Resolved]
  - Fatigue [Not Recovered/Not Resolved]
  - Apathy [Not Recovered/Not Resolved]
  - Cold sweat [Not Recovered/Not Resolved]
  - Hot flush [Not Recovered/Not Resolved]

NARRATIVE: CASE EVENT DATE: 20250429
